FAERS Safety Report 25842380 (Version 1)
Quarter: 2025Q3

REPORT INFORMATION
  Report Type: Spontaneous
  Country: US (occurrence: None)
  Receive Date: 20250924
  Receipt Date: 20250924
  Transmission Date: 20251020
  Serious: Yes (Death, Life-Threatening, Hospitalization)
  Sender: FDA-CTU
  Company Number: None

PATIENT
  Age: 73 Year
  Sex: Male
  Weight: 72 kg

DRUGS (8)
  1. SULFAMETHOXAZOLE\TRIMETHOPRIM [Suspect]
     Active Substance: SULFAMETHOXAZOLE\TRIMETHOPRIM
     Indication: Abscess
     Dosage: FREQUENCY : TWICE A DAY;?
     Route: 048
     Dates: start: 20250515, end: 20250519
  2. JARDIANCE [Concomitant]
     Active Substance: EMPAGLIFLOZIN
  3. ENALAPRIL [Concomitant]
     Active Substance: ENALAPRIL
  4. ATORVASTATIN [Concomitant]
     Active Substance: ATORVASTATIN
  5. ASPIRIN [Concomitant]
     Active Substance: ASPIRIN
  6. LEVOTHYROXINE [Concomitant]
     Active Substance: LEVOTHYROXINE
  7. METFORMIN [Concomitant]
     Active Substance: METFORMIN HYDROCHLORIDE
  8. PANTOPRAZOLE SODIUM [Concomitant]
     Active Substance: PANTOPRAZOLE SODIUM

REACTIONS (11)
  - Clostridial sepsis [None]
  - Asthenia [None]
  - Unresponsive to stimuli [None]
  - Diarrhoea [None]
  - Hypoglycaemia [None]
  - Blood pressure measurement [None]
  - Cardio-respiratory arrest [None]
  - Shock [None]
  - Rhabdomyolysis [None]
  - Acute kidney injury [None]
  - Cardiac arrest [None]

NARRATIVE: CASE EVENT DATE: 20250520
